FAERS Safety Report 9001289 (Version 1)
Quarter: 2013Q1

REPORT INFORMATION
  Report Type: Spontaneous
  Country: US (occurrence: US)
  Receive Date: 20130107
  Receipt Date: 20130107
  Transmission Date: 20140127
  Serious: Yes (Death)
  Sender: FDA-Public Use
  Company Number: US-ASTRAZENECA-2013SE00671

PATIENT
  Sex: Female

DRUGS (12)
  1. HYDROCHLOROTHIAZIDE [Suspect]
     Route: 048
  2. LISINOPRIL [Suspect]
     Route: 048
  3. METOPROLOL [Suspect]
     Route: 048
  4. METFORMIN [Suspect]
     Route: 048
  5. ACETAMINOPHEN\HYDROCODONE [Suspect]
     Route: 048
  6. NICARDIPINE [Suspect]
     Route: 048
  7. ETHANOL [Suspect]
     Route: 048
  8. INSULIN [Suspect]
     Route: 048
  9. CYCLOBENZAPRINE [Suspect]
     Route: 048
  10. CLONIDINE [Suspect]
     Route: 048
  11. VITAMIN D [Suspect]
     Route: 048
  12. AMOXICILLIN [Suspect]
     Route: 048

REACTIONS (3)
  - Completed suicide [Fatal]
  - Toxicity to various agents [Fatal]
  - Cardio-respiratory arrest [Fatal]
